FAERS Safety Report 6859469-5 (Version None)
Quarter: 2010Q3

REPORT INFORMATION
  Report Type: 
  Country: None (occurrence: None)
  Receive Date: 20100719
  Receipt Date: 20080227
  Transmission Date: 20110219
  Serious: No
  Sender: FDA-Public Use
  Company Number: US-PFIZER INC-2008020239

PATIENT
  Sex: Female
  Weight: 68 kg

DRUGS (10)
  1. CHANTIX [Suspect]
     Indication: SMOKING CESSATION THERAPY
     Dates: start: 20070101, end: 20070101
  2. WARFARIN SODIUM [Concomitant]
  3. PROZAC [Concomitant]
  4. CARDIOVASCULAR SYSTEM DRUGS [Concomitant]
  5. LASIX [Concomitant]
  6. TOPROL-XL [Concomitant]
  7. SYNTHROID [Concomitant]
  8. XANAX [Concomitant]
  9. VARIOUS ALIMENTARY TRACT + METABOLISM PRODUCT [Concomitant]
  10. ADVAIR DISKUS 100/50 [Concomitant]

REACTIONS (1)
  - SOMNOLENCE [None]
